FAERS Safety Report 9130379 (Version 1)
Quarter: 2013Q1

REPORT INFORMATION
  Report Type: Spontaneous
  Country: US (occurrence: US)
  Receive Date: 20130228
  Receipt Date: 20130228
  Transmission Date: 20140127
  Serious: No
  Sender: FDA-Public Use
  Company Number: US-PFIZER INC-2013066872

PATIENT
  Age: 66 Year
  Sex: Female
  Weight: 65 kg

DRUGS (4)
  1. TORISEL [Suspect]
     Indication: RENAL CANCER
     Dosage: UNK
     Dates: start: 201109, end: 20111130
  2. AVASTIN [Suspect]
     Dosage: UNK
     Dates: start: 201109, end: 20111130
  3. AFINITOR [Suspect]
     Dosage: UNK
     Dates: start: 2010, end: 201106
  4. GLEEVEC [Suspect]
     Dosage: UNK
     Dates: start: 201106, end: 201108

REACTIONS (3)
  - Disease progression [Unknown]
  - Renal cancer metastatic [Unknown]
  - Dyslipidaemia [Unknown]
